FAERS Safety Report 6782511-7 (Version None)
Quarter: 2010Q2

REPORT INFORMATION
  Report Type: 
  Country: None (occurrence: None)
  Receive Date: 20100616
  Receipt Date: 20100609
  Transmission Date: 20101027
  Serious: Yes (Other)
  Sender: FDA-Public Use
  Company Number: 2010AL003414

PATIENT
  Sex: Male

DRUGS (1)
  1. METOCLOPRAMIDE [Suspect]
     Dosage: 10 MG; PO
     Route: 048
     Dates: start: 20031001, end: 20080901

REACTIONS (4)
  - ECONOMIC PROBLEM [None]
  - EMOTIONAL DISORDER [None]
  - EXTRAPYRAMIDAL DISORDER [None]
  - TARDIVE DYSKINESIA [None]
